FAERS Safety Report 8235960-4 (Version None)
Quarter: 2012Q1

REPORT INFORMATION
  Report Type: 
  Country: None (occurrence: None)
  Receive Date: 20120326
  Receipt Date: 20120312
  Transmission Date: 20120608
  Serious: Yes (Other)
  Sender: FDA-Public Use
  Company Number: GB-ROCHE-1048302

PATIENT
  Sex: Male

DRUGS (1)
  1. ISOTRETINOIN [Suspect]
     Indication: ACNE
     Route: 048
     Dates: start: 20110307, end: 20110601

REACTIONS (9)
  - DEPRESSION [None]
  - LIP DRY [None]
  - NASAL DRYNESS [None]
  - CHAPPED LIPS [None]
  - OROPHARYNGEAL PAIN [None]
  - FLATULENCE [None]
  - SINUSITIS [None]
  - IRRITABLE BOWEL SYNDROME [None]
  - HYPOSMIA [None]
